FAERS Safety Report 6573480-3 (Version None)
Quarter: 2010Q1

REPORT INFORMATION
  Report Type: 
  Country: None (occurrence: None)
  Receive Date: 20100204
  Receipt Date: 20100204
  Transmission Date: 20100710
  Serious: Yes (Other)
  Sender: FDA-Public Use
  Company Number: None

PATIENT
  Sex: Female
  Weight: 72.5755 kg

DRUGS (1)
  1. STRATTERA [Suspect]
     Dosage: 120 MG 1 PER DAY

REACTIONS (2)
  - DELUSION [None]
  - PARANOIA [None]
